FAERS Safety Report 19570497 (Version 2)
Quarter: 2021Q3

REPORT INFORMATION
  Report Type: Report from Study
  Country: US (occurrence: US)
  Receive Date: 20210716
  Receipt Date: 20210903
  Transmission Date: 20211014
  Serious: Yes (Hospitalization)
  Sender: FDA-Public Use
  Company Number: US-REGENERON PHARMACEUTICALS, INC.-2021-67272

PATIENT

DRUGS (1)
  1. CASIRIVIMAB AND IMDEVIMAB [Suspect]
     Active Substance: CASIRIVIMAB\IMDEVIMAB
     Indication: COVID-19
     Dosage: 1200/1200 MG, SINGLE DOSE
     Route: 042
     Dates: start: 20210628, end: 20210628

REACTIONS (8)
  - Acute respiratory failure [Unknown]
  - Hypokalaemia [Unknown]
  - Lymphopenia [Unknown]
  - COVID-19 pneumonia [Unknown]
  - Hypertension [Unknown]
  - Incorrect dose administered [Unknown]
  - Decreased appetite [Unknown]
  - Diarrhoea [Unknown]

NARRATIVE: CASE EVENT DATE: 2021
